FAERS Safety Report 6308138-9 (Version None)
Quarter: 2009Q3

REPORT INFORMATION
  Report Type: 
  Country: None (occurrence: None)
  Receive Date: 20090807
  Receipt Date: 20090730
  Transmission Date: 20100115
  Serious: Yes (Hospitalization)
  Sender: FDA-Public Use
  Company Number: 1000007870

PATIENT
  Age: 51 Year
  Sex: Female

DRUGS (2)
  1. THYROID TAB [Suspect]
     Indication: HYPOTHYROIDISM
     Dosage: ORAL
     Route: 048
  2. ANTI-ANXIETY MEDICATION (NOS) [Concomitant]

REACTIONS (3)
  - HYPOTHYROIDISM [None]
  - PRODUCT FORMULATION ISSUE [None]
  - SUICIDAL IDEATION [None]
